FAERS Safety Report 7893814-7 (Version None)
Quarter: 2011Q4

REPORT INFORMATION
  Report Type: 
  Country: None (occurrence: None)
  Receive Date: 20111104
  Receipt Date: 20111028
  Transmission Date: 20120403
  Serious: Yes (Hospitalization)
  Sender: FDA-Public Use
  Company Number: US-B.I. PHARMACEUTICALS,INC./RIDGEFIELD-2011-BP-25231BP

PATIENT
  Sex: Male

DRUGS (3)
  1. PROAIR HFA [Concomitant]
     Route: 055
     Dates: start: 20111027
  2. PRADAXA [Suspect]
     Indication: ATRIAL FIBRILLATION
     Dosage: 300 MG
     Route: 048
     Dates: start: 20111010
  3. CLINDAMYCIN [Concomitant]
     Dates: start: 20111027

REACTIONS (8)
  - WHEEZING [None]
  - DYSPEPSIA [None]
  - FEELING ABNORMAL [None]
  - ABDOMINAL DISCOMFORT [None]
  - CARDIAC ABLATION [None]
  - INSOMNIA [None]
  - DYSPNOEA [None]
  - ABDOMINAL DISTENSION [None]
